FAERS Safety Report 9032276 (Version 5)
Quarter: 2014Q2

REPORT INFORMATION
  Report Type: Spontaneous
  Country: FR (occurrence: FR)
  Receive Date: 20130122
  Receipt Date: 20140502
  Transmission Date: 20141212
  Serious: Yes (Death, Hospitalization, Disabling, Other)
  Sender: FDA-Public Use
  Company Number: PHHY2013FR005568

PATIENT
  Sex: Female

DRUGS (45)
  1. NEORAL [Suspect]
     Dosage: 75 MG, BID
     Dates: start: 20060103
  2. NEORAL [Interacting]
     Dosage: 60 MG, BID
  3. NEORAL [Interacting]
     Dosage: 50 MG, BID
  4. NEORAL [Interacting]
     Dosage: 10 MG, BID
  5. NEORAL [Interacting]
     Dosage: 60 MG, BID
  6. TAHOR [Interacting]
     Indication: BLOOD CHOLESTEROL INCREASED
     Dosage: 80 MG
  7. CLAMOXYL [Concomitant]
     Indication: PROPHYLAXIS
     Dosage: 1 G, BID
  8. CLAMOXYL [Concomitant]
     Dosage: 1 DF, BID
  9. ZELITREX [Concomitant]
     Indication: PROPHYLAXIS
     Dosage: 500 MG, BID
  10. ZELITREX [Concomitant]
     Dosage: 1000 MG, QD
  11. PENTACARINAT [Concomitant]
     Indication: PNEUMOCYSTIS JIROVECII PNEUMONIA
     Dosage: 300 MG, MONTHLY
  12. PENTACARINAT [Concomitant]
     Dosage: 300 MG, QW
  13. KARDEGIC [Concomitant]
     Dosage: 75 MG, DAILY
  14. LASILIX [Concomitant]
     Indication: ACUTE PULMONARY OEDEMA
     Dosage: 20 MG, DAILY
  15. LASILIX [Concomitant]
     Indication: PLEURAL EFFUSION
     Route: 042
  16. LASILIX [Concomitant]
     Indication: HYPOALBUMINAEMIA
  17. INEXIUM//ESOMEPRAZOLE MAGNESIUM [Concomitant]
     Dosage: 20 MG, DAILY
  18. INEXIUM//ESOMEPRAZOLE MAGNESIUM [Concomitant]
     Dosage: 20 MG, DAILY, IN THE EVENING
  19. DAFALGAN [Concomitant]
     Dosage: 2 DF, QID
  20. DAFALGAN [Concomitant]
     Dosage: 4 DF, DAILY
  21. BACTRIM FORTE [Concomitant]
     Dosage: 1 DF, THREE TIMES A WEEK
  22. ACYCLOVIR [Concomitant]
     Dosage: 800 MG, BID
  23. KAYEXALATE [Concomitant]
  24. ACTRAPID [Concomitant]
  25. ORACILLIN [Concomitant]
     Dosage: 1000000 IU, BID
  26. DELURSAN [Concomitant]
  27. TENORMINE [Concomitant]
     Dosage: 0.5 DF, UNK
  28. LEXOMIL [Concomitant]
     Dosage: 0.25 DF, DAILY
  29. FORLAX [Concomitant]
     Dosage: 2 DF, BID
  30. ASPIRINE [Concomitant]
     Dosage: 1 MG, PER DAY
  31. CALCIPARINE [Concomitant]
     Dosage: 12000 U, TID
  32. CARDENSIEL [Concomitant]
     Dosage: 1.25 MG, BID
  33. CARDENSIEL [Concomitant]
     Dosage: 5 MG, PER DAY
  34. ACUPAN [Concomitant]
  35. DOLIPRANE [Concomitant]
  36. VACICLOVIR [Concomitant]
     Dosage: 500 MG, BID
  37. SPASFON [Concomitant]
     Dosage: 1 DF, PRN
  38. SODIUM BICARBONATE [Concomitant]
  39. EFFERALGAN [Concomitant]
     Dosage: 2 DF, PER DAY
  40. DISCOTRINE [Concomitant]
     Dosage: 5 MG, PER DAY
  41. SPECIAFOLDINE [Concomitant]
     Dosage: 5 MG, TID
  42. TARDYFERON [Concomitant]
     Dosage: 1 DF, BID
  43. PHLOROGLUCINOL [Concomitant]
     Dosage: 2 DF, Q6H
  44. AMOXICILLINE [Concomitant]
     Indication: INFECTION PROPHYLAXIS
     Dosage: 1 G, BID
  45. AUGMENTIN [Concomitant]
     Indication: INFECTION PROPHYLAXIS

REACTIONS (81)
  - Death [Fatal]
  - Cerebral infarction [Unknown]
  - Hypoaesthesia [Unknown]
  - Paresis [Unknown]
  - Hemiparesis [Unknown]
  - Confusional state [Unknown]
  - Speech disorder [Unknown]
  - Asthenia [Recovered/Resolved]
  - Arterial stenosis [Unknown]
  - Cardiac flutter [Unknown]
  - Supraventricular extrasystoles [Unknown]
  - Ischaemic stroke [Recovered/Resolved]
  - Aphasia [Unknown]
  - VIIth nerve paralysis [Recovered/Resolved]
  - Pleural effusion [Unknown]
  - Dyspnoea [Unknown]
  - Dyspnoea exertional [Unknown]
  - Acute respiratory distress syndrome [Recovered/Resolved]
  - Acute pulmonary oedema [Unknown]
  - Atrial fibrillation [Unknown]
  - Angina pectoris [Recovered/Resolved]
  - Chest pain [Recovered/Resolved]
  - Arrhythmia [Unknown]
  - Movement disorder [Unknown]
  - Malnutrition [Unknown]
  - General physical health deterioration [Unknown]
  - Neuromyopathy [Unknown]
  - Leukocytosis [Unknown]
  - Hypercalcaemia [Recovered/Resolved]
  - Lung disorder [Recovered/Resolved]
  - Hyperkalaemia [Unknown]
  - Urinary tract disorder [Unknown]
  - Nervous system disorder [Unknown]
  - Haemoptysis [Unknown]
  - Keratitis [Unknown]
  - Cholelithiasis [Unknown]
  - Abdominal pain [Recovered/Resolved]
  - Nausea [Recovered/Resolved]
  - Vomiting [Recovered/Resolved]
  - Cerebral palsy [Unknown]
  - Restrictive pulmonary disease [Unknown]
  - Respiratory failure [Unknown]
  - Respiratory distress [Unknown]
  - Hypoalbuminaemia [Unknown]
  - Pelvic mass [Unknown]
  - Bone pain [Unknown]
  - Pulmonary oedema [Recovered/Resolved]
  - Cardiac failure [Unknown]
  - Mitral valve incompetence [Unknown]
  - Tricuspid valve incompetence [Unknown]
  - Anaemia macrocytic [Unknown]
  - Renal tubular necrosis [Unknown]
  - Rhabdomyolysis [Unknown]
  - Pain [Unknown]
  - Joint stiffness [Unknown]
  - Musculoskeletal stiffness [Unknown]
  - Myalgia [Unknown]
  - Renal failure [Unknown]
  - Anuria [Unknown]
  - Oedema peripheral [Unknown]
  - Hypercreatininaemia [Unknown]
  - Azotaemia [Unknown]
  - C-reactive protein increased [Unknown]
  - Proteinuria [Unknown]
  - Oedema [Unknown]
  - Pneumonia [Unknown]
  - Device related infection [Recovered/Resolved]
  - Polyneuropathy [Unknown]
  - Metabolic encephalopathy [Unknown]
  - Graft versus host disease [Unknown]
  - Urinary tract infection [Unknown]
  - Citrobacter infection [Unknown]
  - Systemic inflammatory response syndrome [Unknown]
  - Renal failure chronic [Unknown]
  - Ovarian cyst [Unknown]
  - Blood cholesterol increased [Unknown]
  - Pneumonia pneumococcal [Unknown]
  - Graft versus host disease in skin [Unknown]
  - Erythema [Unknown]
  - Drug interaction [Unknown]
  - Immunosuppressant drug level increased [Unknown]
